FAERS Safety Report 17873515 (Version 1)
Quarter: 2020Q2

REPORT INFORMATION
  Report Type: Spontaneous
  Country: US (occurrence: US)
  Receive Date: 20200609
  Receipt Date: 20200609
  Transmission Date: 20200714
  Serious: No
  Sender: FDA-Public Use
  Company Number: US-GILEAD-2020-0469995

PATIENT
  Sex: Male

DRUGS (11)
  1. LASIX [Concomitant]
     Active Substance: FUROSEMIDE
  2. HYOSCYAMINE. [Concomitant]
     Active Substance: HYOSCYAMINE
  3. NIFEDIPINE. [Concomitant]
     Active Substance: NIFEDIPINE
  4. HUMALOG [Concomitant]
     Active Substance: INSULIN LISPRO
  5. SOFOSBUVIR;VELPATASVIR [Suspect]
     Active Substance: SOFOSBUVIR\VELPATASVIR
     Indication: CHRONIC HEPATITIS C
     Dosage: 1 DOSAGE FORM, QD
     Route: 048
     Dates: start: 202005
  6. ASPIRIN [ACETYLSALICYLIC ACID] [Concomitant]
     Active Substance: ASPIRIN
  7. NORCO [Concomitant]
     Active Substance: ACETAMINOPHEN\HYDROCODONE BITARTRATE
  8. FOLIC ACID. [Concomitant]
     Active Substance: FOLIC ACID
  9. IRON [Concomitant]
     Active Substance: IRON
  10. CLONIDINE HYDROCHLORIDE. [Concomitant]
     Active Substance: CLONIDINE HYDROCHLORIDE
  11. ATORVASTATIN CALCIUM. [Concomitant]
     Active Substance: ATORVASTATIN CALCIUM

REACTIONS (2)
  - Product dose omission [Recovered/Resolved]
  - Vomiting [Recovered/Resolved]
